FAERS Safety Report 19757616 (Version 1)
Quarter: 2021Q3

REPORT INFORMATION
  Report Type: Spontaneous
  Country: JP (occurrence: JP)
  Receive Date: 20210827
  Receipt Date: 20210827
  Transmission Date: 20211014
  Serious: Yes (Hospitalization, Other)
  Sender: FDA-Public Use
  Company Number: JP-RISING PHARMA HOLDINGS, INC.-2021RIS000069

PATIENT
  Age: 74 Year
  Sex: Female

DRUGS (2)
  1. BROTIZOLAM [Concomitant]
     Active Substance: BROTIZOLAM
     Indication: INSOMNIA
     Dosage: 0.25 MILLIGRAM, QD
     Route: 065
  2. PREGABALIN. [Suspect]
     Active Substance: PREGABALIN
     Indication: NEURALGIA
     Dosage: 150 MILLIGRAM, QD
     Route: 065

REACTIONS (13)
  - Drug withdrawal syndrome [Recovered/Resolved]
  - Insomnia [Recovering/Resolving]
  - Depression [Recovered/Resolved]
  - Decreased appetite [Unknown]
  - Epigastric discomfort [Unknown]
  - Headache [Unknown]
  - Restlessness [Recovered/Resolved]
  - Tremor [Unknown]
  - Suicidal ideation [Recovered/Resolved]
  - Dyspnoea [Unknown]
  - Lacrimation increased [Unknown]
  - Cold sweat [Unknown]
  - Anxiety [Recovered/Resolved]
